FAERS Safety Report 18425531 (Version 1)
Quarter: 2020Q4

REPORT INFORMATION
  Report Type: Spontaneous
  Country: AR (occurrence: AR)
  Receive Date: 20201026
  Receipt Date: 20201026
  Transmission Date: 20210114
  Serious: Yes (Other)
  Sender: FDA-Public Use
  Company Number: AR-PFIZER INC-2020412582

PATIENT
  Age: 43 Year
  Sex: Female

DRUGS (2)
  1. IBRANCE [Suspect]
     Active Substance: PALBOCICLIB
     Dosage: 125 MG, DAILY( CYCLIC 3X1 SCHEME)
     Dates: start: 20201017, end: 20201019
  2. IBRANCE [Suspect]
     Active Substance: PALBOCICLIB
     Indication: BREAST CANCER METASTATIC
     Dosage: 125 MG, DAILY( CYCLIC 3X1 SCHEME)
     Dates: start: 20190118

REACTIONS (2)
  - Neoplasm progression [Unknown]
  - Hepatitis [Unknown]

NARRATIVE: CASE EVENT DATE: 20201019
